FAERS Safety Report 7417773-6 (Version None)
Quarter: 2011Q2

REPORT INFORMATION
  Report Type: 
  Country: None (occurrence: None)
  Receive Date: 20110415
  Receipt Date: 20110411
  Transmission Date: 20111010
  Serious: Yes (Other)
  Sender: FDA-Public Use
  Company Number: IN-PFIZER INC-2011080240

PATIENT
  Age: 60 Year
  Sex: Female

DRUGS (1)
  1. PHENYTOIN SODIUM [Suspect]
     Indication: GRAND MAL CONVULSION
     Dosage: 900 MG, SINGLE LOADING DOSE OVER 45 MINUTES
     Route: 042

REACTIONS (2)
  - EXTRAVASATION [None]
  - PURPLE GLOVE SYNDROME [None]
